FAERS Safety Report 7248624-0 (Version None)
Quarter: 2011Q1

REPORT INFORMATION
  Report Type: 
  Country: None (occurrence: None)
  Receive Date: 20110128
  Receipt Date: 20101223
  Transmission Date: 20110831
  Serious: Yes (Hospitalization, Other)
  Sender: FDA-Public Use
  Company Number: CA-BAYER-2010-007339

PATIENT
  Age: 54 Year
  Sex: Female

DRUGS (7)
  1. ASPIRIN [Suspect]
     Indication: PRODUCT USED FOR UNKNOWN INDICATION
  2. ACETAMINOPHEN [Concomitant]
  3. ADVIL LIQUI-GELS [Concomitant]
  4. SILDENAFIL CITRATE [Suspect]
     Indication: PULMONARY HYPERTENSION
     Dosage: UNK UNK, TID
     Dates: start: 20071201
  5. TRACLEER [Concomitant]
     Indication: PULMONARY HYPERTENSION
  6. TREPROSTINOL [Concomitant]
  7. DIGOXIN [Concomitant]

REACTIONS (4)
  - OEDEMA [None]
  - RENAL FAILURE [None]
  - BLINDNESS [None]
  - DELIRIUM [None]
